FAERS Safety Report 17116863 (Version 4)
Quarter: 2020Q2

REPORT INFORMATION
  Report Type: Spontaneous
  Country: CZ (occurrence: CZ)
  Receive Date: 20191205
  Receipt Date: 20200630
  Transmission Date: 20200713
  Serious: Yes (Life-Threatening, Other)
  Sender: FDA-Public Use
  Company Number: CZ-MYLANLABS-2019M1118835

PATIENT
  Age: 67 Year
  Sex: Female

DRUGS (13)
  1. OXALIPLATIN. [Suspect]
     Active Substance: OXALIPLATIN
     Indication: ADENOCARCINOMA OF COLON
     Dosage: 5 CYCLICAL, REDUCTION OF DOSE TO 75 PERCENT
     Route: 065
     Dates: start: 201711
  2. FOLINIC ACID [Concomitant]
     Active Substance: LEUCOVORIN
     Indication: ADENOCARCINOMA
     Dosage: UNK UNK, CYCLE
     Dates: start: 201711
  3. OXALIPLATIN. [Suspect]
     Active Substance: OXALIPLATIN
     Indication: ADENOCARCINOMA
     Dosage: UNK UNK, CYCLE
     Dates: start: 201711
  4. FOLINIC ACID [Concomitant]
     Active Substance: LEUCOVORIN
     Indication: ADENOCARCINOMA OF COLON
     Dosage: UNK
     Dates: start: 201711
  5. FLUOROURACIL. [Concomitant]
     Active Substance: FLUOROURACIL
     Indication: ADENOCARCINOMA OF COLON
     Dosage: UNK
     Dates: start: 201711
  6. FLUOROURACIL. [Concomitant]
     Active Substance: FLUOROURACIL
     Indication: ADENOCARCINOMA
     Dosage: 10 CYCLICAL, REDUCED TO 80 PERCENT
     Dates: start: 201711
  7. FOLINIC ACID [Concomitant]
     Active Substance: LEUCOVORIN
     Dosage: UNK
  8. PANITUMUMAB [Concomitant]
     Active Substance: PANITUMUMAB
     Dosage: UNK
     Dates: start: 201711
  9. OXALIPLATIN. [Suspect]
     Active Substance: OXALIPLATIN
     Indication: NEOPLASM MALIGNANT
     Dosage: UNK
     Route: 042
     Dates: start: 201711
  10. VECTIBIX [Suspect]
     Active Substance: PANITUMUMAB
     Indication: ADENOCARCINOMA OF COLON
     Dosage: UNK
     Dates: start: 201711
  11. VECTIBIX [Suspect]
     Active Substance: PANITUMUMAB
     Dosage: UNK
  12. FLUOROURACIL. [Concomitant]
     Active Substance: FLUOROURACIL
     Dosage: UNK, REDUCTION OF DOSE TO 80 PERCENT
     Dates: start: 201803
  13. VECTIBIX [Suspect]
     Active Substance: PANITUMUMAB
     Indication: ADENOCARCINOMA
     Dosage: UNK UNK, CYCLE
     Dates: start: 201711

REACTIONS (5)
  - Neutropenia [Recovered/Resolved]
  - Paronychia [Recovered/Resolved]
  - Rash maculo-papular [Recovering/Resolving]
  - Hypomagnesaemia [Recovered/Resolved]
  - Anaemia [Recovered/Resolved]

NARRATIVE: CASE EVENT DATE: 201711
